FAERS Safety Report 11420457 (Version 1)
Quarter: 2015Q3

REPORT INFORMATION
  Report Type: Spontaneous
  Country: US (occurrence: US)
  Receive Date: 20150826
  Receipt Date: 20150826
  Transmission Date: 20151125
  Serious: No
  Sender: FDA-Public Use
  Company Number: US-BAYER-2015-407589

PATIENT
  Age: 2 Year
  Sex: Male
  Weight: 15.87 kg

DRUGS (2)
  1. CHILDREN CLARITIN ALLERGY [Suspect]
     Active Substance: LORATADINE
     Dosage: UNK
  2. CHILDREN CLARITIN ALLERGY [Suspect]
     Active Substance: LORATADINE
     Dosage: 3 DF, ONCE
     Route: 048

REACTIONS (2)
  - Somnolence [None]
  - Accidental exposure to product by child [Unknown]

NARRATIVE: CASE EVENT DATE: 20150821
